FAERS Safety Report 26140927 (Version 1)
Quarter: 2025Q4

REPORT INFORMATION
  Report Type: Spontaneous
  Country: US (occurrence: None)
  Receive Date: 20251210
  Receipt Date: 20251210
  Transmission Date: 20260117
  Serious: No
  Sender: FDA-CTU
  Company Number: None

PATIENT
  Age: 82 Year
  Sex: Male
  Weight: 58 kg

DRUGS (1)
  1. SOLIFENACIN SUCCINATE [Suspect]
     Active Substance: SOLIFENACIN SUCCINATE
     Dosage: FREQUENCY : DAILY;
     Route: 048
     Dates: start: 20250725, end: 20250813

REACTIONS (5)
  - Urinary tract infection [None]
  - Peripheral swelling [None]
  - Hypophagia [None]
  - Asthenia [None]
  - Diarrhoea [None]

NARRATIVE: CASE EVENT DATE: 20250814
